FAERS Safety Report 25925053 (Version 1)
Quarter: 2025Q4

REPORT INFORMATION
  Report Type: Spontaneous
  Country: US (occurrence: US)
  Receive Date: 20251015
  Receipt Date: 20251015
  Transmission Date: 20260117
  Serious: Yes (Life-Threatening, Other)
  Sender: SANDOZ
  Company Number: US-002147023-NVSC2023US212355

PATIENT
  Sex: Male

DRUGS (4)
  1. ALLOPURINOL [Interacting]
     Active Substance: ALLOPURINOL
     Indication: Product used for unknown indication
     Dosage: UNK
     Route: 065
  2. ENTRESTO [Interacting]
     Active Substance: SACUBITRIL\VALSARTAN
     Indication: Product used for unknown indication
     Dosage: UNK
     Route: 065
     Dates: start: 2016
  3. ENTRESTO [Interacting]
     Active Substance: SACUBITRIL\VALSARTAN
     Dosage: UNK (FULL DOSAGE AFTER 3 WEEKS OF TITRATION)
     Route: 065
     Dates: start: 20230906
  4. VANCOMYCIN [Interacting]
     Active Substance: VANCOMYCIN
     Indication: Product used for unknown indication
     Dosage: UNK
     Route: 065

REACTIONS (5)
  - Accident [Unknown]
  - Localised infection [Recovered/Resolved]
  - Labelled drug-drug interaction issue [Unknown]
  - Vancomycin infusion reaction [Recovered/Resolved]
  - Skin exfoliation [Recovered/Resolved]

NARRATIVE: CASE EVENT DATE: 20161001
